FAERS Safety Report 21326331 (Version 2)
Quarter: 2022Q3

REPORT INFORMATION
  Report Type: Spontaneous
  Country: US (occurrence: US)
  Receive Date: 20220913
  Receipt Date: 20220914
  Transmission Date: 20221026
  Serious: Yes (Other)
  Sender: FDA-Public Use
  Company Number: US-IPSEN Group, Research and Development-2022-25513

PATIENT
  Age: 8 Year
  Sex: Male
  Weight: 23.1 kg

DRUGS (7)
  1. INCRELEX [Suspect]
     Active Substance: MECASERMIN
     Indication: Severe primary insulin like growth factor-1 deficiency
     Dosage: 0.07 (MG/KG)
     Route: 065
     Dates: start: 20160501, end: 20160824
  2. INCRELEX [Suspect]
     Active Substance: MECASERMIN
     Dosage: 0.10 (MG/KG)
     Route: 065
     Dates: start: 20160901, end: 20161219
  3. INCRELEX [Suspect]
     Active Substance: MECASERMIN
     Dosage: 0.1 (MG/KG)
     Route: 065
     Dates: start: 20161219, end: 20180723
  4. INCRELEX [Suspect]
     Active Substance: MECASERMIN
     Dosage: 0.09 (MG/KG)
     Route: 065
     Dates: start: 20180707, end: 20190909
  5. INCRELEX [Suspect]
     Active Substance: MECASERMIN
     Dosage: 0.1 (MG/KG)
     Route: 065
     Dates: start: 20190909
  6. FLONASE [Concomitant]
     Active Substance: FLUTICASONE PROPIONATE
     Route: 045
  7. SINGULAIR [Concomitant]
     Active Substance: MONTELUKAST SODIUM
     Route: 048

REACTIONS (1)
  - Tonsillar hypertrophy [Recovered/Resolved]

NARRATIVE: CASE EVENT DATE: 20180118
